FAERS Safety Report 9658579 (Version 2)
Quarter: 2013Q4

REPORT INFORMATION
  Report Type: Spontaneous
  Country: US (occurrence: US)
  Receive Date: 20131030
  Receipt Date: 20131030
  Transmission Date: 20140711
  Serious: No
  Sender: FDA-Public Use
  Company Number: US-PURDUE-USA-2010-0047599

PATIENT
  Age: 46 Year
  Sex: Female
  Weight: 63.49 kg

DRUGS (6)
  1. OXYCONTIN (NDA 22-272) [Suspect]
     Indication: PAIN
     Dosage: 40 MG, 4 TABLETS DAILY
     Dates: start: 201009, end: 201009
  2. OXYCONTIN (NDA 22-272) [Suspect]
     Indication: FIBROMYALGIA
  3. OXYCONTIN (NDA 22-272) [Suspect]
     Indication: HEPATITIS C
  4. IBUPROFEN                          /00109205/ [Concomitant]
     Indication: PRODUCT USED FOR UNKNOWN INDICATION
     Dosage: 800 MG, UNK
  5. ROXICODONE [Concomitant]
     Indication: PRODUCT USED FOR UNKNOWN INDICATION
     Dosage: 30 MG, UNK
  6. ALPRAZOLAM [Concomitant]
     Indication: PRODUCT USED FOR UNKNOWN INDICATION
     Dosage: 5 MG, UNK

REACTIONS (13)
  - Mobility decreased [Unknown]
  - Impaired work ability [Unknown]
  - Drug hypersensitivity [Unknown]
  - Therapeutic response delayed [Unknown]
  - Joint swelling [Unknown]
  - Rash macular [Recovered/Resolved]
  - Fatigue [Unknown]
  - Sedation [Recovered/Resolved]
  - Drug ineffective [Recovered/Resolved]
  - Nausea [Recovered/Resolved]
  - Joint stiffness [Recovered/Resolved]
  - Somnolence [Recovered/Resolved]
  - Local swelling [Recovered/Resolved]
